FAERS Safety Report 15988810 (Version 1)
Quarter: 2019Q1

REPORT INFORMATION
  Report Type: Spontaneous
  Country: ES (occurrence: ES)
  Receive Date: 20190221
  Receipt Date: 20190221
  Transmission Date: 20190418
  Serious: Yes (Hospitalization)
  Sender: FDA-Public Use
  Company Number: ES-TEVA-2019-ES-1013942

PATIENT
  Age: 31 Year
  Sex: Female

DRUGS (7)
  1. TIZANIDINE. [Interacting]
     Active Substance: TIZANIDINE
     Indication: MUSCLE CONTRACTURE
     Dosage: 4 MILLIGRAM DAILY; UPON RE-INITIATION
     Route: 065
  2. TIZANIDINE. [Interacting]
     Active Substance: TIZANIDINE
     Indication: MUSCLE CONTRACTURE
     Dosage: 2 MILLIGRAM DAILY; UPON RE-INITIATION
     Route: 065
  3. DIAZEPAM. [Interacting]
     Active Substance: DIAZEPAM
     Indication: MIXED ANXIETY AND DEPRESSIVE DISORDER
     Dosage: 7.5 MILLIGRAM DAILY;
     Route: 065
  4. SERTRALINE [Suspect]
     Active Substance: SERTRALINE HYDROCHLORIDE
     Indication: MIXED ANXIETY AND DEPRESSIVE DISORDER
     Dosage: 100 MILLIGRAM DAILY;
     Route: 065
  5. TIZANIDINE. [Interacting]
     Active Substance: TIZANIDINE
     Indication: MUSCLE CONTRACTURE
     Dosage: 6 MILLIGRAM DAILY; SCHEDULED TO BE ADMINISTERED AT THIS DOSE (6MG/DAY) FOR A MONTH
     Route: 065
  6. TIZANIDINE. [Interacting]
     Active Substance: TIZANIDINE
     Indication: MUSCLE CONTRACTURE
     Dosage: 6 MILLIGRAM DAILY; UPON RE-INITIATION
     Route: 065
  7. TIZANIDINE. [Interacting]
     Active Substance: TIZANIDINE
     Indication: MUSCLE CONTRACTURE
     Dosage: 16 MILLIGRAM DAILY; DOSAGE MODIFICATION ON OWN ACCORD
     Route: 065

REACTIONS (16)
  - Tachypnoea [Recovering/Resolving]
  - Drug interaction [Recovering/Resolving]
  - Hyperthermia [Recovering/Resolving]
  - Anxiety [Recovering/Resolving]
  - Vomiting [Recovering/Resolving]
  - Sympathomimetic effect [Recovering/Resolving]
  - Agitation [Recovering/Resolving]
  - Tremor [Recovered/Resolved]
  - Heart rate increased [Recovered/Resolved]
  - Tachycardia [Recovered/Resolved]
  - Hypertension [Not Recovered/Not Resolved]
  - Nausea [Recovering/Resolving]
  - Haemodynamic instability [Recovered/Resolved]
  - Drug withdrawal syndrome [Recovering/Resolving]
  - Sinus tachycardia [Recovered/Resolved]
  - Intentional product misuse [Recovering/Resolving]
